FAERS Safety Report 5705867-2 (Version None)
Quarter: 2008Q2

REPORT INFORMATION
  Report Type: 
  Country: None (occurrence: None)
  Receive Date: 20080415
  Receipt Date: 20080407
  Transmission Date: 20081010
  Serious: Yes (Other)
  Sender: FDA-Public Use
  Company Number: US-MERCK-0804USA01863

PATIENT
  Age: 43 Year
  Sex: Female

DRUGS (5)
  1. VYTORIN [Suspect]
     Indication: BLOOD CHOLESTEROL INCREASED
     Route: 048
  2. CARBAMAZEPINE [Concomitant]
     Route: 065
  3. METOPROLOL [Concomitant]
     Route: 065
  4. PRINIVIL [Concomitant]
     Route: 048
  5. ASPIRIN [Concomitant]
     Route: 065

REACTIONS (5)
  - AMNESIA [None]
  - CONVULSION [None]
  - COUGH [None]
  - HEADACHE [None]
  - TREMOR [None]
